FAERS Safety Report 8622921-6 (Version None)
Quarter: 2012Q3

REPORT INFORMATION
  Report Type: 
  Country: None (occurrence: None)
  Receive Date: 20120827
  Receipt Date: 20120821
  Transmission Date: 20120928
  Serious: Yes (Hospitalization)
  Sender: FDA-Public Use
  Company Number: US-TEVA-355034USA

PATIENT
  Sex: Male

DRUGS (3)
  1. DEXEDRINE [Suspect]
  2. DEXTROAMPHETAMINE SULFATE [Suspect]
  3. AMPHETAMINE AND DEXTROAMPHETAMINE SALTS [Suspect]
     Indication: PRODUCT USED FOR UNKNOWN INDICATION
     Dosage: 2 TABLETS 3 TIMES A DAY

REACTIONS (6)
  - LOSS OF CONSCIOUSNESS [None]
  - MALAISE [None]
  - DIZZINESS [None]
  - FATIGUE [None]
  - ACTIVITIES OF DAILY LIVING IMPAIRED [None]
  - NAUSEA [None]
